FAERS Safety Report 7442754-6 (Version None)
Quarter: 2011Q2

REPORT INFORMATION
  Report Type: 
  Country: None (occurrence: None)
  Receive Date: 20110428
  Receipt Date: 20110418
  Transmission Date: 20111010
  Serious: Yes (Other)
  Sender: FDA-Public Use
  Company Number: FI-TEVA-247872ISR

PATIENT
  Sex: Male

DRUGS (8)
  1. LEVODOPA W/CARBIDOPA [Concomitant]
     Indication: PARKINSON'S DISEASE
     Dosage: 100/200MG DAILY
     Route: 048
     Dates: start: 20090101
  2. PRAMIPEXOLE DIHYCHLLORIDE [Concomitant]
     Indication: PARKINSON'S DISEASE
     Route: 048
     Dates: start: 20081203, end: 20090301
  3. ESCITALOPRAM [Interacting]
     Dosage: 5-10 MG
     Route: 048
     Dates: start: 20100526, end: 20100801
  4. AZILECT [Suspect]
     Indication: PARKINSON'S DISEASE
     Dosage: 1 MILLIGRAM;
     Route: 048
     Dates: start: 20071107, end: 20100801
  5. ATORVASTATIN CALCIUM [Interacting]
     Indication: HYPERCHOLESTEROLAEMIA
     Dosage: 10 MILLIGRAM;
     Route: 048
     Dates: start: 20040101
  6. CABERGOLINE [Concomitant]
     Indication: PARKINSON'S DISEASE
     Route: 048
     Dates: start: 20040101, end: 20080521
  7. ROPINIROLE HYDROCHLORIDE [Concomitant]
     Indication: PARKINSON'S DISEASE
     Route: 048
     Dates: start: 20080801
  8. NEUPRO [Concomitant]
     Indication: PARKINSON'S DISEASE
     Route: 061
     Dates: start: 20100521

REACTIONS (4)
  - TENDONITIS [None]
  - MUSCLE RUPTURE [None]
  - MYOSITIS [None]
  - DRUG INTERACTION [None]
